FAERS Safety Report 14732752 (Version 1)
Quarter: 2018Q2

REPORT INFORMATION
  Report Type: Report from Study
  Country: US (occurrence: US)
  Receive Date: 20180409
  Receipt Date: 20180409
  Transmission Date: 20180711
  Serious: No
  Sender: FDA-Public Use
  Company Number: US-AMGEN-USASL2018045738

PATIENT
  Age: 69 Year
  Sex: Female

DRUGS (3)
  1. VITAMIN D [Concomitant]
     Active Substance: CHOLECALCIFEROL
     Dosage: UNK
  2. ENBREL [Suspect]
     Active Substance: ETANERCEPT
     Indication: PSORIASIS
     Dosage: 50 MG, 2 TIMES/WK
     Route: 065
     Dates: start: 2014
  3. VITAMIN E [Concomitant]
     Active Substance: .ALPHA.-TOCOPHEROL
     Dosage: UNK

REACTIONS (5)
  - Accidental exposure to product [Unknown]
  - Off label use [Unknown]
  - Injection site haemorrhage [Unknown]
  - Pruritus [Recovered/Resolved]
  - Injection site pain [Unknown]

NARRATIVE: CASE EVENT DATE: 2014
